FAERS Safety Report 10610015 (Version 5)
Quarter: 2015Q2

REPORT INFORMATION
  Report Type: Spontaneous
  Country: US (occurrence: US)
  Receive Date: 20141126
  Receipt Date: 20150522
  Transmission Date: 20150821
  Serious: Yes (Hospitalization, Disabling)
  Sender: FDA-Public Use
  Company Number: US-009507513-1204USA04463

PATIENT
  Sex: Male
  Weight: 65.31 kg

DRUGS (2)
  1. PROPECIA [Suspect]
     Active Substance: FINASTERIDE
     Indication: ALOPECIA
     Dosage: 1 MG, QD
     Route: 048
     Dates: start: 20080923, end: 20081013
  2. CLONAZEPAM. [Concomitant]
     Active Substance: CLONAZEPAM
     Indication: PERIODIC LIMB MOVEMENT DISORDER
     Dosage: 0.5 MG, HS PRN
     Route: 048
     Dates: start: 2007

REACTIONS (22)
  - Adverse event [Unknown]
  - Androgen deficiency [Unknown]
  - Sleep apnoea syndrome [Unknown]
  - Sexual dysfunction [Not Recovered/Not Resolved]
  - Hyperglycaemia [Unknown]
  - Ejaculation failure [Not Recovered/Not Resolved]
  - Adrenal insufficiency [Unknown]
  - Metabolic syndrome [Unknown]
  - Anxiety [Not Recovered/Not Resolved]
  - Cognitive disorder [Not Recovered/Not Resolved]
  - Anxiety [Not Recovered/Not Resolved]
  - Erectile dysfunction [Not Recovered/Not Resolved]
  - Weight decreased [Unknown]
  - Scrotal operation [Unknown]
  - Insomnia [Unknown]
  - Drug ineffective [Unknown]
  - Hypogonadism [Not Recovered/Not Resolved]
  - Ejaculation disorder [Not Recovered/Not Resolved]
  - Depression [Not Recovered/Not Resolved]
  - Scrotal disorder [Unknown]
  - Libido decreased [Not Recovered/Not Resolved]
  - Myalgia [Unknown]

NARRATIVE: CASE EVENT DATE: 200811
